FAERS Safety Report 6504389-9 (Version None)
Quarter: 2009Q4

REPORT INFORMATION
  Report Type: 
  Country: None (occurrence: None)
  Receive Date: 20091217
  Receipt Date: 20091208
  Transmission Date: 20100525
  Serious: Yes (Other)
  Sender: FDA-Public Use
  Company Number: CH-BAXTER-2009BH019217

PATIENT
  Age: 34 Year
  Sex: Female
  Weight: 64 kg

DRUGS (9)
  1. ENDOXAN BAXTER [Suspect]
     Indication: BREAST CANCER FEMALE
     Route: 065
     Dates: start: 20090106, end: 20090217
  2. FLUOROURACIL [Suspect]
     Indication: BREAST CANCER FEMALE
     Route: 065
     Dates: start: 20090106, end: 20090217
  3. EPIRUBICIN HYDROCHLORIDE [Suspect]
     Indication: BREAST CANCER FEMALE
     Route: 065
     Dates: start: 20090106, end: 20090217
  4. ZOFRAN [Suspect]
     Indication: NAUSEA
     Route: 065
     Dates: start: 20090106
  5. ZOFRAN [Suspect]
     Indication: VOMITING
     Route: 065
     Dates: start: 20090106
  6. ZURCAL [Suspect]
     Indication: PROPHYLAXIS
     Route: 065
     Dates: start: 20090101
  7. SOLU-MEDROL [Concomitant]
     Indication: NAUSEA
     Route: 065
  8. FERRO SANOL COMP [Concomitant]
     Indication: NAUSEA
     Route: 065
     Dates: start: 20090101
  9. ELEVIT RDI [Concomitant]
     Indication: PREGNANCY
     Route: 065
     Dates: start: 20080101, end: 20090101

REACTIONS (1)
  - DRUG EXPOSURE DURING PREGNANCY [None]
